FAERS Safety Report 13572117 (Version 1)
Quarter: 2017Q2

REPORT INFORMATION
  Report Type: Spontaneous
  Country: DE (occurrence: DE)
  Receive Date: 20170523
  Receipt Date: 20170523
  Transmission Date: 20170830
  Serious: Yes (Other)
  Sender: FDA-Public Use
  Company Number: PHHY2017DE071368

PATIENT
  Sex: Male

DRUGS (1)
  1. COSENTYX [Suspect]
     Active Substance: SECUKINUMAB
     Indication: PSORIATIC ARTHROPATHY
     Dosage: 150 MG, UNK
     Route: 065

REACTIONS (5)
  - Neutropenia [Unknown]
  - Blood count abnormal [Unknown]
  - Neutrophil count decreased [Unknown]
  - Band neutrophil count decreased [Unknown]
  - White blood cell count decreased [Unknown]
